FAERS Safety Report 14481985 (Version 1)
Quarter: 2018Q1

REPORT INFORMATION
  Report Type: Spontaneous
  Country: US (occurrence: US)
  Receive Date: 20180202
  Receipt Date: 20180202
  Transmission Date: 20180509
  Serious: No
  Sender: FDA-Public Use
  Company Number: None

PATIENT
  Age: 24 Year
  Sex: Female
  Weight: 91.63 kg

DRUGS (2)
  1. ONE A DAY VITAMINS [Concomitant]
  2. NEXPLANON [Suspect]
     Active Substance: ETONOGESTREL

REACTIONS (5)
  - Suicidal ideation [None]
  - Migraine [None]
  - Depression [None]
  - Menstruation irregular [None]
  - Anxiety [None]

NARRATIVE: CASE EVENT DATE: 20150601
